FAERS Safety Report 22293123 (Version 1)
Quarter: 2023Q2

REPORT INFORMATION
  Report Type: Report from Study
  Country: BR (occurrence: BR)
  Receive Date: 20230508
  Receipt Date: 20230508
  Transmission Date: 20230722
  Serious: Yes (Other)
  Sender: FDA-Public Use
  Company Number: BR-002147023-NVSC2023BR104143

PATIENT
  Age: 90 Year
  Sex: Female

DRUGS (1)
  1. BRINZOLAMIDE\TIMOLOL MALEATE [Suspect]
     Active Substance: BRINZOLAMIDE\TIMOLOL MALEATE
     Indication: Glaucoma
     Dosage: UNK, CONT (AROUND 10 YEARS AGO)
     Route: 047

REACTIONS (4)
  - Femur fracture [Unknown]
  - Cataract [Unknown]
  - Fall [Unknown]
  - Movement disorder [Unknown]
